FAERS Safety Report 5091108-9 (Version None)
Quarter: 2006Q3

REPORT INFORMATION
  Report Type: 
  Country: None (occurrence: None)
  Receive Date: 20060824
  Receipt Date: 20060811
  Transmission Date: 20061208
  Serious: Yes (Other)
  Sender: FDA-Public Use
  Company Number: 2006100485

PATIENT
  Age: 74 Year
  Sex: Male

DRUGS (1)
  1. XANAX [Suspect]
     Indication: DRUG USE FOR UNKNOWN INDICATION

REACTIONS (9)
  - ABNORMAL DREAMS [None]
  - ABNORMAL SLEEP-RELATED EVENT [None]
  - FACE INJURY [None]
  - FACIAL BONES FRACTURE [None]
  - LACERATION [None]
  - MOUTH INJURY [None]
  - SINUS DISORDER [None]
  - SKIN LACERATION [None]
  - SKULL FRACTURE [None]
